FAERS Safety Report 5657981-8 (Version None)
Quarter: 2008Q1

REPORT INFORMATION
  Report Type: 
  Country: None (occurrence: None)
  Receive Date: 20080310
  Receipt Date: 20080225
  Transmission Date: 20080703
  Serious: Yes (Hospitalization, Other)
  Sender: FDA-Public Use
  Company Number: PHBS2008CH02655

PATIENT
  Age: 10 Year
  Sex: Male

DRUGS (4)
  1. METHYLPHENIDATE HCL [Suspect]
     Indication: ATTENTION DEFICIT/HYPERACTIVITY DISORDER
  2. SEVOFLURANE [Suspect]
     Indication: ANAESTHESIA
  3. PROPOFOL [Suspect]
     Indication: ANAESTHESIA
     Dosage: 2 MG/KG
     Route: 042
  4. ALFENTANIL [Suspect]
     Indication: ANAESTHESIA
     Dosage: 10 UG/KG
     Route: 042

REACTIONS (4)
  - BRADYCARDIA [None]
  - CARDIAC ARREST [None]
  - RESUSCITATION [None]
  - SURGERY [None]
